FAERS Safety Report 11847151 (Version 1)
Quarter: 2015Q4

REPORT INFORMATION
  Report Type: Spontaneous
  Country: US (occurrence: US)
  Receive Date: 20151217
  Receipt Date: 20151217
  Transmission Date: 20160305
  Serious: No
  Sender: FDA-Public Use
  Company Number: US-ROCHE-1480055

PATIENT
  Age: 2 Year
  Sex: Male

DRUGS (1)
  1. TAMIFLU [Suspect]
     Active Substance: OSELTAMIVIR PHOSPHATE
     Indication: INFLUENZA
     Dosage: TWICE DAY
     Route: 048
     Dates: start: 20141020, end: 20141024

REACTIONS (2)
  - Diarrhoea [Unknown]
  - Anger [Unknown]

NARRATIVE: CASE EVENT DATE: 20141023
